FAERS Safety Report 5795966-1 (Version None)
Quarter: 2008Q3

REPORT INFORMATION
  Report Type: 
  Country: None (occurrence: None)
  Receive Date: 20080701
  Receipt Date: 20080625
  Transmission Date: 20090109
  Serious: Yes (Death)
  Sender: FDA-Public Use
  Company Number: CA-JNJFOC-20080606604

PATIENT
  Age: 46 Year
  Sex: Male

DRUGS (7)
  1. FENTANYL [Suspect]
     Indication: DRUG USE FOR UNKNOWN INDICATION
     Route: 062
  2. ENBREL [Suspect]
     Indication: DRUG USE FOR UNKNOWN INDICATION
     Route: 058
  3. OXYCODONE HCL [Suspect]
     Indication: DRUG USE FOR UNKNOWN INDICATION
  4. CLONIDINE [Concomitant]
  5. IBUROFEN [Concomitant]
  6. MORPHINE [Concomitant]
  7. ZOPICLONE [Concomitant]

REACTIONS (8)
  - BACTERIAL INFECTION [None]
  - CORONARY ARTERY OCCLUSION [None]
  - FEELING ABNORMAL [None]
  - LOCALISED INFECTION [None]
  - MYOCARDIAL INFARCTION [None]
  - RASH [None]
  - SOMNOLENCE [None]
  - VIRAL INFECTION [None]
